FAERS Safety Report 7723928-3 (Version None)
Quarter: 2011Q3

REPORT INFORMATION
  Report Type: 
  Country: None (occurrence: None)
  Receive Date: 20110901
  Receipt Date: 20110822
  Transmission Date: 20111222
  Serious: Yes (Death, Other)
  Sender: FDA-Public Use
  Company Number: US-ELI_LILLY_AND_COMPANY-US201104006688

PATIENT
  Sex: Male
  Weight: 42.177 kg

DRUGS (15)
  1. DURAGESIC-100 [Concomitant]
     Indication: PAIN
     Dosage: UNK UNK, OTHER
  2. NEULASTA [Concomitant]
     Dosage: 6 MG, UNK
     Route: 058
     Dates: start: 20110609
  3. VORICONAZOLE [Concomitant]
     Dosage: 200 UG, BID
     Route: 048
  4. PREDNISONE [Concomitant]
     Dosage: 10 MG, QD
     Route: 048
  5. ACETAMINOPHEN [Concomitant]
     Dosage: 500 MG, OTHER
  6. PROAIR HFA [Concomitant]
     Indication: DYSPNOEA
     Dosage: 2 DF, EVERY 4 HRS
  7. FORTEO [Suspect]
     Dosage: UNK, UNKNOWN
     Route: 065
     Dates: end: 20101201
  8. OXYGEN [Concomitant]
     Indication: DYSPNOEA
     Dosage: 2 L, UNK
  9. PROCRIT [Concomitant]
     Dosage: UNK
     Route: 058
     Dates: start: 20110124
  10. PROTONIX [Concomitant]
     Dosage: 40 MG, QD
     Route: 048
  11. ADVAIR DISKUS 100/50 [Concomitant]
     Dosage: UNK UNK, BID
     Route: 048
  12. SULFAMETHOXAZOLE AND TRIMETHOPRIM DOUBLE STRENGTH [Concomitant]
     Dosage: UNK UNK, BID
     Route: 048
  13. HYDROCODONE BITARTRATE [Concomitant]
     Dosage: 5 MG, OTHER
     Route: 048
  14. SPIRIVA [Concomitant]
     Dosage: 18 UG, BID
     Route: 048
  15. PROCRIT [Concomitant]
     Dosage: UNK
     Route: 058
     Dates: start: 20110621

REACTIONS (1)
  - MYELODYSPLASTIC SYNDROME [None]
